FAERS Safety Report 7048395-7 (Version None)
Quarter: 2010Q4

REPORT INFORMATION
  Report Type: 
  Country: None (occurrence: None)
  Receive Date: 20101015
  Receipt Date: 20101015
  Transmission Date: 20110411
  Serious: Yes (Other)
  Sender: FDA-Public Use
  Company Number: None

PATIENT
  Age: 20 Year
  Sex: Male
  Weight: 87 kg

DRUGS (1)
  1. TACROLIMUS [Suspect]
     Indication: GLOMERULONEPHRITIS MEMBRANOUS
     Dosage: 4 MG PO Q12
     Route: 048
     Dates: start: 20091001, end: 20091021

REACTIONS (2)
  - PRODUCT SUBSTITUTION ISSUE [None]
  - RENAL IMPAIRMENT [None]
